FAERS Safety Report 6256184-6 (Version None)
Quarter: 2009Q3

REPORT INFORMATION
  Report Type: 
  Country: None (occurrence: None)
  Receive Date: 20090706
  Receipt Date: 20090629
  Transmission Date: 20100115
  Serious: Yes (Death)
  Sender: FDA-Public Use
  Company Number: PHHY2009SE26504

PATIENT
  Age: 67 Year
  Sex: Male

DRUGS (2)
  1. STALEVO 100 [Suspect]
  2. NEUPRO [Suspect]

REACTIONS (1)
  - DEATH [None]
